FAERS Safety Report 15947510 (Version 1)
Quarter: 2019Q1

REPORT INFORMATION
  Report Type: Spontaneous
  Country: US (occurrence: US)
  Receive Date: 20190211
  Receipt Date: 20190211
  Transmission Date: 20190417
  Serious: No
  Sender: FDA-Public Use
  Company Number: US-TARO-2018TAR00671

PATIENT
  Sex: Female

DRUGS (1)
  1. MICONAZOLE NITRATE 2% CREAM ANTIFUNGAL [Suspect]
     Active Substance: MICONAZOLE NITRATE
     Indication: FUNGAL INFECTION
     Dosage: UNK
     Route: 061

REACTIONS (4)
  - Product quality issue [Recovered/Resolved]
  - Product administered at inappropriate site [None]
  - Fungal infection [Recovered/Resolved]
  - Drug ineffective for unapproved indication [Recovered/Resolved]
